FAERS Safety Report 17505557 (Version 3)
Quarter: 2020Q3

REPORT INFORMATION
  Report Type: Spontaneous
  Country: US (occurrence: US)
  Receive Date: 20200305
  Receipt Date: 20200801
  Transmission Date: 20201102
  Serious: Yes (Other)
  Sender: FDA-Public Use
  Company Number: US-SA-2020SA056247

PATIENT

DRUGS (12)
  1. SERTRALINE [Concomitant]
     Active Substance: SERTRALINE HYDROCHLORIDE
     Route: 065
  2. LANTUS [Suspect]
     Active Substance: INSULIN GLARGINE
     Indication: TYPE 2 DIABETES MELLITUS
     Dosage: 32 IU, DAILY IN AM
     Route: 065
  3. HUMALOG [Concomitant]
     Active Substance: INSULIN LISPRO
     Route: 065
  4. LISINOPRIL. [Concomitant]
     Active Substance: LISINOPRIL
     Route: 065
  5. CLONIDINE. [Concomitant]
     Active Substance: CLONIDINE
     Route: 065
  6. ACYCLOVIR [ACICLOVIR] [Concomitant]
     Active Substance: ACYCLOVIR
     Route: 065
  7. CITRACAL PLUS D [Concomitant]
     Route: 065
  8. PREDNISONE. [Concomitant]
     Active Substance: PREDNISONE
     Route: 065
  9. VITAMIN C [Concomitant]
     Active Substance: ASCORBIC ACID
     Route: 065
  10. LANTUS [Suspect]
     Active Substance: INSULIN GLARGINE
     Dosage: 28 IU, HS
     Route: 065
  11. PANTOPRAZOLE [Concomitant]
     Active Substance: PANTOPRAZOLE
     Route: 065
  12. MAGNESIUM [Concomitant]
     Active Substance: MAGNESIUM
     Route: 065

REACTIONS (2)
  - Intentional product misuse [Unknown]
  - Leukaemia [Unknown]
